FAERS Safety Report 21625101 (Version 2)
Quarter: 2023Q1

REPORT INFORMATION
  Report Type: Spontaneous
  Country: US (occurrence: US)
  Receive Date: 20221122
  Receipt Date: 20230307
  Transmission Date: 20230418
  Serious: Yes (Hospitalization, Other)
  Sender: FDA-Public Use
  Company Number: US-BRISTOL-MYERS SQUIBB COMPANY-2022-138728

PATIENT
  Age: 75 Year
  Sex: Female
  Weight: 51.71 kg

DRUGS (2)
  1. POMALYST [Suspect]
     Active Substance: POMALIDOMIDE
     Indication: Plasma cell myeloma
     Dosage: 21D ON 7D OFF
     Route: 048
     Dates: start: 20220901, end: 20221114
  2. POMALYST [Suspect]
     Active Substance: POMALIDOMIDE
     Dosage: 21
     Route: 048
     Dates: start: 20221211

REACTIONS (6)
  - Infection [Unknown]
  - Incoherent [Unknown]
  - Loss of control of legs [Unknown]
  - Drug hypersensitivity [Unknown]
  - Thinking abnormal [Unknown]
  - Speech disorder [Unknown]

NARRATIVE: CASE EVENT DATE: 20221114
